FAERS Safety Report 19195808 (Version 7)
Quarter: 2022Q1

REPORT INFORMATION
  Report Type: Report from Study
  Country: US (occurrence: US)
  Receive Date: 20210429
  Receipt Date: 20220103
  Transmission Date: 20220423
  Serious: Yes (Other)
  Sender: FDA-Public Use
  Company Number: US-KYOWAKIRIN-2021BKK006667

PATIENT

DRUGS (4)
  1. POTELIGEO [Suspect]
     Active Substance: MOGAMULIZUMAB-KPKC
     Indication: Product used for unknown indication
     Dosage: UNK
     Route: 065
  2. COVID-19 VACCINE NOS [Concomitant]
     Active Substance: COVID-19 VACCINE NOS
     Indication: Product used for unknown indication
     Dosage: UNK
     Route: 065
  3. VITAMIN D NOS [Concomitant]
     Active Substance: VITAMIN D NOS
     Indication: Product used for unknown indication
     Dosage: UNK
     Route: 065
  4. VITAMIN D NOS [Concomitant]
     Active Substance: VITAMIN D NOS
     Dosage: UNK
     Route: 065
     Dates: start: 2021

REACTIONS (19)
  - Ear infection fungal [Recovered/Resolved]
  - Injury [Not Recovered/Not Resolved]
  - Condition aggravated [Not Recovered/Not Resolved]
  - Nodule [Recovered/Resolved]
  - Skin disorder [Unknown]
  - Erythema [Unknown]
  - Pruritus [Unknown]
  - Skin plaque [Unknown]
  - Hyperhidrosis [Not Recovered/Not Resolved]
  - Anal fungal infection [Unknown]
  - Skin atrophy [Unknown]
  - Skin laceration [Unknown]
  - Alopecia [Unknown]
  - Rash macular [Unknown]
  - Limb injury [Unknown]
  - Weight increased [Unknown]
  - Gait disturbance [Unknown]
  - Fatigue [Unknown]
  - Dermatitis [Unknown]

NARRATIVE: CASE EVENT DATE: 20210101
